FAERS Safety Report 5128640-5 (Version None)
Quarter: 2006Q4

REPORT INFORMATION
  Report Type: 
  Country: None (occurrence: None)
  Receive Date: 20061011
  Receipt Date: 20060928
  Transmission Date: 20070319
  Serious: Yes (Other)
  Sender: FDA-Public Use
  Company Number: 2006118573

PATIENT
  Sex: Female

DRUGS (6)
  1. LYRICA [Suspect]
     Dates: start: 20060901
  2. AMBIEN [Concomitant]
  3. NORTRIPTYLINE HCL [Concomitant]
  4. DIGOXIN [Concomitant]
  5. NEXIUM [Concomitant]
  6. ALL OTHER THERAPEUTIC PRODUCTS (ALL OTHER THERAPEUTIC PRODUCTS) [Concomitant]

REACTIONS (1)
  - HEARING IMPAIRED [None]
